FAERS Safety Report 17452423 (Version 11)
Quarter: 2020Q4

REPORT INFORMATION
  Report Type: Spontaneous
  Country: US (occurrence: US)
  Receive Date: 20200224
  Receipt Date: 20201110
  Transmission Date: 20210113
  Serious: Yes (Other)
  Sender: FDA-Public Use
  Company Number: US-PFIZER INC-2020078924

PATIENT
  Age: 67 Year
  Sex: Male
  Weight: 83.91 kg

DRUGS (8)
  1. VYNDAQEL [Suspect]
     Active Substance: TAFAMIDIS MEGLUMINE
     Indication: AMYLOIDOSIS
     Dosage: 80 MG, 1X/DAY
     Route: 048
     Dates: start: 201911
  2. TORSEMIDE. [Concomitant]
     Active Substance: TORSEMIDE
     Indication: DIURETIC THERAPY
     Dosage: UNK
  3. LISINOPRIL. [Concomitant]
     Active Substance: LISINOPRIL
     Dosage: 20 MG
  4. ELIQUIS [Concomitant]
     Active Substance: APIXABAN
     Dosage: UNK
  5. VYNDAQEL [Suspect]
     Active Substance: TAFAMIDIS MEGLUMINE
     Dosage: 80 MG, DAILY (20 MG X 4, DAILY)
     Route: 048
     Dates: start: 2019
  6. POTASSIUM [Concomitant]
     Active Substance: POTASSIUM
     Dosage: UNK
  7. PLAVIX [Concomitant]
     Active Substance: CLOPIDOGREL BISULFATE
     Dosage: 75 MG
  8. ATORVASTATIN [Concomitant]
     Active Substance: ATORVASTATIN
     Indication: BLOOD CHOLESTEROL ABNORMAL
     Dosage: 40 MG

REACTIONS (14)
  - Weight increased [Unknown]
  - Left ventricular hypertrophy [Unknown]
  - Arrhythmia supraventricular [Unknown]
  - Atrial tachycardia [Unknown]
  - Fatigue [Unknown]
  - Cardiac failure [Unknown]
  - Product use in unapproved indication [Unknown]
  - Atrial fibrillation [Unknown]
  - Off label use [Unknown]
  - Dyspnoea [Unknown]
  - Abdominal pain upper [Unknown]
  - Palpitations [Unknown]
  - Oedema peripheral [Unknown]
  - Heart rate increased [Recovering/Resolving]

NARRATIVE: CASE EVENT DATE: 201911
